FAERS Safety Report 9169138 (Version 2)
Quarter: 2013Q2

REPORT INFORMATION
  Report Type: Spontaneous
  Country: US (occurrence: None)
  Receive Date: 20130308
  Receipt Date: 20130416
  Transmission Date: 20140414
  Serious: Yes (Other)
  Sender: FDA-Public Use
  Company Number: CLCY20130049

PATIENT
  Age: 78 Year
  Sex: Female

DRUGS (1)
  1. COLCRYS [Suspect]
     Indication: GOUT
     Dates: start: 20120301

REACTIONS (10)
  - Muscular weakness [None]
  - Paraesthesia [None]
  - Diarrhoea [None]
  - Fatigue [None]
  - Tongue discolouration [None]
  - Arthralgia [None]
  - Hypoaesthesia [None]
  - Vaginal infection [None]
  - Vaginal haemorrhage [None]
  - Rectal haemorrhage [None]
